FAERS Safety Report 5274081-X (Version None)
Quarter: 2007Q1

REPORT INFORMATION
  Report Type: 
  Country: None (occurrence: None)
  Receive Date: 20070323
  Receipt Date: 20070309
  Transmission Date: 20070707
  Serious: Yes (Other)
  Sender: FDA-Public Use
  Company Number: PHBS2007BR04542

PATIENT
  Age: 83 Year
  Sex: Female

DRUGS (2)
  1. EXELON [Suspect]
     Indication: DEMENTIA ALZHEIMER'S TYPE
     Dosage: 1.5 MG, BID
     Route: 048
     Dates: start: 20070101
  2. CAPTOPRIL [Concomitant]
     Indication: HYPERTENSION
     Dosage: 0.5 DF DAILY
     Route: 048
     Dates: start: 20070101

REACTIONS (7)
  - BLOOD PRESSURE DECREASED [None]
  - BREAST CANCER FEMALE [None]
  - DIARRHOEA [None]
  - EATING DISORDER [None]
  - GASTROENTERITIS ROTAVIRUS [None]
  - MEMORY IMPAIRMENT [None]
  - VOMITING [None]
